FAERS Safety Report 15498785 (Version 1)
Quarter: 2018Q4

REPORT INFORMATION
  Report Type: Spontaneous
  Country: AU (occurrence: AU)
  Receive Date: 20181015
  Receipt Date: 20181015
  Transmission Date: 20190205
  Serious: Yes (Hospitalization)
  Sender: FDA-Public Use
  Company Number: AU-SCIEGEN PHARMACEUTICALS INC-2018SCILIT00678

PATIENT

DRUGS (1)
  1. OLMESARTAN MEDOXOMIL TABLETS 5 MG, 20 MG, 40 MG [Suspect]
     Active Substance: OLMESARTAN MEDOXOMIL
     Indication: HYPERTENSION
     Dosage: 40 MG, QD FOR 8 YEARS
     Route: 048

REACTIONS (2)
  - Duodenal ulcer [Recovering/Resolving]
  - Sprue-like enteropathy [Recovering/Resolving]
